FAERS Safety Report 18132244 (Version 21)
Quarter: 2025Q1

REPORT INFORMATION
  Report Type: Report from Study
  Country: US (occurrence: US)
  Receive Date: 20200811
  Receipt Date: 20250321
  Transmission Date: 20250408
  Serious: Yes (Other)
  Sender: TAKEDA
  Company Number: US-SHIRE-US202024700

PATIENT
  Sex: Female
  Weight: 79 kg

DRUGS (16)
  1. HUMAN IMMUNOGLOBULIN G [Suspect]
     Active Substance: HUMAN IMMUNOGLOBULIN G
     Indication: Immunodeficiency common variable
     Dosage: 15 GRAM, Q2WEEKS
     Dates: start: 20191114
  2. ACETAMINOPHEN [Concomitant]
     Active Substance: ACETAMINOPHEN
  3. PROTONIX [Concomitant]
     Active Substance: PANTOPRAZOLE SODIUM
  4. MAXZIDE [Concomitant]
     Active Substance: HYDROCHLOROTHIAZIDE\TRIAMTERENE
  5. VITAMIN D3 [Concomitant]
     Active Substance: CHOLECALCIFEROL
  6. DIPHENHYDRAMINE [Concomitant]
     Active Substance: DIPHENHYDRAMINE
  7. Lmx [Concomitant]
  8. ATENOLOL [Concomitant]
     Active Substance: ATENOLOL
  9. EPINEPHRINE [Concomitant]
     Active Substance: EPINEPHRINE
  10. HERBALS\TURMERIC [Concomitant]
     Active Substance: HERBALS\TURMERIC
  11. VITAMIN E [Concomitant]
     Active Substance: .ALPHA.-TOCOPHEROL
  12. SIMVASTATIN [Concomitant]
     Active Substance: SIMVASTATIN
  13. VITAMIN C [Concomitant]
     Active Substance: ASCORBIC ACID
  14. ALLOPURINOL [Concomitant]
     Active Substance: ALLOPURINOL
  15. MONTELUKAST SODIUM [Concomitant]
     Active Substance: MONTELUKAST SODIUM
  16. DUPIXENT [Concomitant]
     Active Substance: DUPILUMAB

REACTIONS (14)
  - Cataract [Unknown]
  - Chronic sinusitis [Unknown]
  - Allergic sinusitis [Unknown]
  - Multiple allergies [Not Recovered/Not Resolved]
  - Nasopharyngitis [Unknown]
  - COVID-19 [Unknown]
  - Gastroenteritis viral [Unknown]
  - Seasonal allergy [Unknown]
  - Product dose omission issue [Unknown]
  - Eczema [Unknown]
  - Blood pressure abnormal [Unknown]
  - Sinus disorder [Unknown]
  - Abdominal discomfort [Unknown]
  - Dysphagia [Unknown]
